FAERS Safety Report 19750408 (Version 1)
Quarter: 2021Q3

REPORT INFORMATION
  Report Type: Spontaneous
  Country: GB (occurrence: GB)
  Receive Date: 20210826
  Receipt Date: 20210826
  Transmission Date: 20211014
  Serious: Yes (Life-Threatening, Other)
  Sender: FDA-Public Use
  Company Number: GB-GLAXOSMITHKLINE-GB2021178205

PATIENT
  Age: 21 Year
  Sex: Female

DRUGS (2)
  1. LEVETIRACETAM ACCORD [Concomitant]
     Active Substance: LEVETIRACETAM
     Indication: ILL-DEFINED DISORDER
     Dosage: UNK
     Route: 065
  2. LAMOTRIGINE. [Suspect]
     Active Substance: LAMOTRIGINE
     Indication: EPILEPSY
     Dosage: 25 MG, BID (25MG BD)
     Route: 048
     Dates: start: 20210820, end: 20210822

REACTIONS (1)
  - Drug eruption [Recovering/Resolving]

NARRATIVE: CASE EVENT DATE: 20210820
